FAERS Safety Report 8190428-9 (Version None)
Quarter: 2012Q1

REPORT INFORMATION
  Report Type: 
  Country: None (occurrence: None)
  Receive Date: 20120305
  Receipt Date: 20120224
  Transmission Date: 20120608
  Serious: Yes (Life-Threatening, Hospitalization)
  Sender: FDA-Public Use
  Company Number: 2012MA002719

PATIENT
  Age: 65 Year
  Sex: Female

DRUGS (15)
  1. LEVOTHYROXINE SODIUM [Concomitant]
  2. ACETAMINOPHEN [Concomitant]
  3. METFORMIN HYDROCHLORIDE [Concomitant]
  4. FUROSEMIDE [Concomitant]
  5. VERAPAMIL [Concomitant]
  6. NOVORAPID [Concomitant]
  7. SIMVASTATIN [Concomitant]
  8. CLINDAMYCIN PHOSPHATE [Suspect]
     Indication: ERYSIPELAS
     Dosage: 300 MG;QID;PO
     Route: 048
     Dates: start: 20120204, end: 20120210
  9. FLOXACILLIN SODIUM [Suspect]
     Indication: ERYSIPELAS
     Dosage: 500 MG;TID;PO
     Route: 048
     Dates: start: 20120202, end: 20120204
  10. LEVEMIR [Concomitant]
  11. SPIRONOLACTONE [Concomitant]
  12. VALSARTAN [Concomitant]
  13. DIGOXIN [Concomitant]
  14. ACENOCOUMAROL [Concomitant]
  15. PAROXETINE [Concomitant]

REACTIONS (2)
  - TOXIC SKIN ERUPTION [None]
  - HAEMODYNAMIC INSTABILITY [None]
